FAERS Safety Report 4827525-9 (Version None)
Quarter: 2005Q4

REPORT INFORMATION
  Report Type: 
  Country: None (occurrence: None)
  Receive Date: 20051114
  Receipt Date: 20051027
  Transmission Date: 20060501
  Serious: Yes (Other)
  Sender: FDA-Public Use
  Company Number: PHBS2005JP15849

PATIENT
  Age: 72 Year
  Sex: Female

DRUGS (1)
  1. RITALIN [Suspect]
     Dosage: UNK, UNK
     Route: 048
     Dates: start: 20051001, end: 20051001

REACTIONS (14)
  - ALOPECIA [None]
  - ANOREXIA [None]
  - ARRHYTHMIA [None]
  - CONSTIPATION [None]
  - DIZZINESS [None]
  - DYSPNOEA [None]
  - HEAD DISCOMFORT [None]
  - HYPERTENSION [None]
  - HYPOAESTHESIA [None]
  - MALAISE [None]
  - NAUSEA [None]
  - PALPITATIONS [None]
  - SOMNOLENCE [None]
  - THIRST [None]
